FAERS Safety Report 23553285 (Version 1)
Quarter: 2024Q1

REPORT INFORMATION
  Report Type: Report from Study
  Country: MY (occurrence: MY)
  Receive Date: 20240222
  Receipt Date: 20240222
  Transmission Date: 20240410
  Serious: Yes (Other)
  Sender: FDA-Public Use
  Company Number: MY-ELI_LILLY_AND_COMPANY-MY202401000115

PATIENT
  Age: 68 Year
  Sex: Female

DRUGS (2)
  1. ABEMACICLIB [Suspect]
     Active Substance: ABEMACICLIB
     Indication: Product used for unknown indication
     Dosage: 150 MG, UNKNOWN
     Route: 065
  2. ABEMACICLIB [Suspect]
     Active Substance: ABEMACICLIB
     Dosage: 100 MG, UNKNOWN
     Route: 065

REACTIONS (3)
  - Red blood cell count decreased [Unknown]
  - Cough [Unknown]
  - Diarrhoea [Unknown]
